FAERS Safety Report 5597142-4 (Version None)
Quarter: 2008Q1

REPORT INFORMATION
  Report Type: 
  Country: None (occurrence: None)
  Receive Date: 20080121
  Receipt Date: 20080111
  Transmission Date: 20080703
  Serious: Yes (Hospitalization)
  Sender: FDA-Public Use
  Company Number: PHRM2008FR00564

PATIENT
  Age: 58 Year
  Sex: Male

DRUGS (10)
  1. TEGRETOL [Suspect]
     Indication: PSYCHOTIC DISORDER
     Dosage: 1200 MG/DAY
     Route: 048
  2. ANAFRANIL [Suspect]
     Indication: PSYCHOTIC DISORDER
     Dosage: 25 MG/DAY
     Route: 048
     Dates: end: 20071025
  3. HALDOL [Suspect]
     Indication: PSYCHOTIC DISORDER
     Route: 030
  4. EQUANIL [Suspect]
     Indication: ALCOHOLISM
     Route: 048
  5. NOZINAN                                 /NET/ [Suspect]
     Indication: PSYCHOTIC DISORDER
     Dosage: 50 MG/DAY
     Route: 048
  6. HYPERIUM [Concomitant]
     Indication: HYPERTENSION
     Dosage: 1 MG/DAY
     Route: 048
  7. ASPEGIC 325 [Concomitant]
     Route: 048
     Dates: end: 20071024
  8. NEBILOX [Concomitant]
     Indication: HYPERTENSION
  9. ALDACTONE [Concomitant]
     Indication: HYPERTENSION
     Route: 048
  10. AMLOR [Concomitant]
     Indication: HYPERTENSION
     Route: 048

REACTIONS (4)
  - BALANCE DISORDER [None]
  - CEREBELLAR SYNDROME [None]
  - FALL [None]
  - GAIT DISTURBANCE [None]
